FAERS Safety Report 22316716 (Version 1)
Quarter: 2023Q2

REPORT INFORMATION
  Report Type: Spontaneous
  Country: IT (occurrence: IT)
  Receive Date: 20230513
  Receipt Date: 20230513
  Transmission Date: 20230722
  Serious: Yes (Other)
  Sender: FDA-Public Use
  Company Number: None

PATIENT
  Age: 42 Year
  Sex: Female

DRUGS (2)
  1. OXCARBAZEPINE [Suspect]
     Active Substance: OXCARBAZEPINE
     Indication: Drug abuse
     Dosage: 10 G (200 MG)
     Route: 048
     Dates: start: 20230319, end: 20230319
  2. LEVOMEPROMAZINE [Suspect]
     Active Substance: LEVOMEPROMAZINE
     Indication: Drug abuse
     Dosage: 500 MG, Q24H (25 MG)
     Route: 048
     Dates: start: 20230319, end: 20230319

REACTIONS (4)
  - Poisoning [Recovered/Resolved]
  - Sopor [Recovering/Resolving]
  - Drug abuse [Recovered/Resolved]
  - Vomiting [Recovering/Resolving]

NARRATIVE: CASE EVENT DATE: 20230319
